FAERS Safety Report 21961830 (Version 2)
Quarter: 2023Q2

REPORT INFORMATION
  Report Type: Spontaneous
  Country: US (occurrence: US)
  Receive Date: 20230207
  Receipt Date: 20230404
  Transmission Date: 20230721
  Serious: No
  Sender: FDA-Public Use
  Company Number: US-BEH-2023154834

PATIENT
  Sex: Male

DRUGS (6)
  1. IDELVION [Suspect]
     Active Substance: COAGULATION FACTOR IX RECOMBINANT HUMAN
     Indication: Factor IX deficiency
     Dosage: 1250 INTERNATIONAL UNIT, QW
     Route: 042
     Dates: start: 20210702
  2. IDELVION [Suspect]
     Active Substance: COAGULATION FACTOR IX RECOMBINANT HUMAN
     Indication: Factor IX deficiency
     Dosage: 1250 INTERNATIONAL UNIT, QW
     Route: 042
     Dates: start: 20210702
  3. IDELVION [Suspect]
     Active Substance: COAGULATION FACTOR IX RECOMBINANT HUMAN
     Indication: Prophylaxis
     Dosage: 267 INTERNATIONAL UNIT, QW
     Route: 042
     Dates: start: 202107
  4. IDELVION [Suspect]
     Active Substance: COAGULATION FACTOR IX RECOMBINANT HUMAN
     Indication: Prophylaxis
     Dosage: 267 INTERNATIONAL UNIT, QW
     Route: 042
     Dates: start: 202107
  5. IDELVION [Suspect]
     Active Substance: COAGULATION FACTOR IX RECOMBINANT HUMAN
     Dosage: 1093 INTERNATIONAL UNIT, QW
     Route: 042
     Dates: start: 202107
  6. IDELVION [Suspect]
     Active Substance: COAGULATION FACTOR IX RECOMBINANT HUMAN
     Dosage: 1093 INTERNATIONAL UNIT, QW
     Route: 042
     Dates: start: 202107

REACTIONS (4)
  - Contusion [Unknown]
  - Wound haemorrhage [Unknown]
  - Wound [Unknown]
  - Contusion [Unknown]
